FAERS Safety Report 11652749 (Version 1)
Quarter: 2015Q4

REPORT INFORMATION
  Report Type: Spontaneous
  Country: FR (occurrence: FR)
  Receive Date: 20151022
  Receipt Date: 20151022
  Transmission Date: 20160304
  Serious: Yes (Life-Threatening, Other)
  Sender: FDA-Public Use
  Company Number: FR-PFIZER INC-2015351614

PATIENT
  Age: 78 Year
  Sex: Male

DRUGS (4)
  1. CISATRACURIUM MYLAN [Interacting]
     Active Substance: CISATRACURIUM
     Indication: INDUCTION OF ANAESTHESIA
     Dosage: 18 MG, UNK
     Route: 042
     Dates: start: 20151007
  2. PROPOFOL LIPURO [Suspect]
     Active Substance: PROPOFOL
     Indication: INDUCTION OF ANAESTHESIA
     Dosage: 300 MG, UNK
     Route: 042
     Dates: start: 20151007
  3. DALACINE [Interacting]
     Active Substance: CLINDAMYCIN HYDROCHLORIDE
     Indication: ANTIBIOTIC PROPHYLAXIS
     Dosage: 600 MG, UNK
     Route: 042
     Dates: start: 20151007
  4. SUFENTANIL MYLAN [Suspect]
     Active Substance: SUFENTANIL
     Indication: INDUCTION OF ANAESTHESIA
     Dosage: 15 ?G, UNK
     Route: 042
     Dates: start: 20151007

REACTIONS (4)
  - Hypotension [Recovering/Resolving]
  - Shock [Recovering/Resolving]
  - Airway complication of anaesthesia [Recovering/Resolving]
  - Drug interaction [Recovering/Resolving]

NARRATIVE: CASE EVENT DATE: 20151007
